FAERS Safety Report 20842557 (Version 5)
Quarter: 2023Q2

REPORT INFORMATION
  Report Type: Other
  Country: DE (occurrence: None)
  Receive Date: 20220518
  Receipt Date: 20230612
  Transmission Date: 20230721
  Serious: No
  Sender: FDA-Public Use
  Company Number: DE-ROCHE-2123188

PATIENT
  Age: 32 Year
  Sex: Female

DRUGS (11)
  1. OCREVUS [Suspect]
     Active Substance: OCRELIZUMAB
     Indication: Relapsing-remitting multiple sclerosis
     Dosage: SECOND INFUSION OF OCREVUS RECEIVED ON 04/MAY/2018
     Route: 042
     Dates: start: 20180420
  2. OCREVUS [Suspect]
     Active Substance: OCRELIZUMAB
     Route: 042
     Dates: start: 20181016
  3. OCREVUS [Suspect]
     Active Substance: OCRELIZUMAB
     Route: 042
     Dates: start: 20190424
  4. OCREVUS [Suspect]
     Active Substance: OCRELIZUMAB
     Route: 042
     Dates: start: 20191018
  5. OCREVUS [Suspect]
     Active Substance: OCRELIZUMAB
     Route: 042
     Dates: start: 20200421
  6. OCREVUS [Suspect]
     Active Substance: OCRELIZUMAB
     Dosage: FIFTH MAINTENANCE DOSE
     Route: 042
     Dates: start: 20201020
  7. COMIRNATY [Suspect]
     Active Substance: TOZINAMERAN
     Indication: COVID-19 prophylaxis
     Dosage: SECOND VACCINE?FIRST DOSE WAS RECEIVED ON JUN/2021
     Route: 065
     Dates: start: 20210805
  8. LEVOTHYROXINE SODIUM [Concomitant]
     Active Substance: LEVOTHYROXINE SODIUM
     Dosage: 25/12.5 UG?ALTERNATING EVERY DAY 25 OR 12.5 UG
  9. LEVOTHYROXINE SODIUM [Concomitant]
     Active Substance: LEVOTHYROXINE SODIUM
     Dosage: ALTERNATING 25 OR 12.5 UG
  10. CHOLECALCIFEROL [Concomitant]
     Active Substance: CHOLECALCIFEROL
  11. VALDOXAN [Concomitant]
     Active Substance: AGOMELATINE

REACTIONS (10)
  - Headache [Recovered/Resolved]
  - Fatigue [Recovered/Resolved]
  - Pain in extremity [Recovered/Resolved]
  - Arthralgia [Recovered/Resolved]
  - Pyrexia [Recovered/Resolved]
  - Diarrhoea [Recovered/Resolved]
  - SARS-CoV-2 antibody test negative [Not Recovered/Not Resolved]
  - COVID-19 [Recovered/Resolved]
  - Musculoskeletal pain [Recovered/Resolved]
  - Arthralgia [Not Recovered/Not Resolved]

NARRATIVE: CASE EVENT DATE: 20180504
